FAERS Safety Report 8514982 (Version 6)
Quarter: 2014Q1

REPORT INFORMATION
  Report Type: Report from Study
  Country: AT (occurrence: AT)
  Receive Date: 20120416
  Receipt Date: 20140116
  Transmission Date: 20141002
  Serious: Yes (Death, Life-Threatening, Hospitalization)
  Sender: FDA-Public Use
  Company Number: PHHO2011AT021756

PATIENT
  Sex: 0

DRUGS (14)
  1. ALISKIREN [Suspect]
     Indication: CARDIAC FAILURE
     Dosage: UNK
     Route: 048
     Dates: start: 20101210, end: 20111124
  2. ALISKIREN [Suspect]
     Dosage: NO TREATMENT RECEIVED
     Dates: start: 20111125
  3. ENALAPRIL [Suspect]
     Indication: CARDIAC FAILURE
     Dosage: UNK
     Route: 048
     Dates: start: 20101210, end: 20111124
  4. ENALAPRIL [Suspect]
     Dosage: NO TREATMENT RECEIVED
     Dates: start: 20111125
  5. MARCOUMAR [Concomitant]
     Indication: ATRIAL FIBRILLATION
     Dosage: UNK
  6. METOPROLOL [Concomitant]
     Indication: CARDIAC FAILURE CHRONIC
     Dosage: 47.5 MG, QD
     Route: 048
  7. TORASEMIDE [Concomitant]
     Indication: CARDIAC FAILURE CHRONIC
     Dosage: 10 MG, BID
     Route: 048
     Dates: start: 20080930
  8. EPLERENONE [Concomitant]
     Indication: CARDIAC FAILURE CHRONIC
     Dosage: 50 MG, QD
     Route: 048
     Dates: start: 201001
  9. CONCOR [Concomitant]
     Indication: CARDIAC FAILURE CHRONIC
  10. DIGOXIN [Concomitant]
     Indication: ATRIAL FIBRILLATION
     Dosage: 0.1 MG, QD
     Route: 048
     Dates: start: 2002
  11. ALLOPURINOL [Concomitant]
     Indication: HYPERURICAEMIA
     Dosage: 100 MG, QD
     Route: 048
  12. LANITOP [Concomitant]
     Indication: CARDIAC FAILURE CHRONIC
  13. FUROSEMIDE [Concomitant]
     Indication: CARDIAC FAILURE CHRONIC
  14. LISINOPRIL [Concomitant]
     Indication: CARDIAC FAILURE CHRONIC

REACTIONS (4)
  - Cardiac failure [Fatal]
  - Renal failure acute [Fatal]
  - Ventricular arrhythmia [Not Recovered/Not Resolved]
  - Femur fracture [Recovered/Resolved]
